FAERS Safety Report 7509614-3 (Version None)
Quarter: 2011Q2

REPORT INFORMATION
  Report Type: 
  Country: None (occurrence: None)
  Receive Date: 20110527
  Receipt Date: 20110520
  Transmission Date: 20111010
  Serious: Yes (Hospitalization, Other)
  Sender: FDA-Public Use
  Company Number: CA-ABBOTT-11P-028-0727408-00

PATIENT
  Sex: Female
  Weight: 81.72 kg

DRUGS (19)
  1. PREDNISONE [Concomitant]
     Indication: RHEUMATOID ARTHRITIS
     Route: 048
     Dates: start: 19960101
  2. PLAVIX [Concomitant]
     Indication: MYOCARDIAL INFARCTION
     Route: 048
     Dates: start: 20090101
  3. BISOPROLOL SANDOZ [Concomitant]
     Indication: MYOCARDIAL INFARCTION
     Route: 048
     Dates: start: 20090101
  4. NAPROXEN [Concomitant]
     Indication: RHEUMATOID ARTHRITIS
     Route: 048
     Dates: start: 19960101
  5. FOLIC ACID [Concomitant]
     Indication: PRODUCT USED FOR UNKNOWN INDICATION
     Route: 048
     Dates: start: 20050101
  6. NOVO-ALPRAZOL [Concomitant]
     Indication: STRESS
     Route: 048
     Dates: start: 20000101
  7. JAMP-ACETYLSALICYLIC ACID [Concomitant]
     Indication: MYOCARDIAL INFARCTION
     Route: 048
     Dates: start: 20090101
  8. UNKNOWN IRON DRUG [Concomitant]
     Indication: PRODUCT USED FOR UNKNOWN INDICATION
     Dosage: 4 DOSES
     Route: 042
     Dates: start: 20100101
  9. PLAQUENIL [Concomitant]
     Indication: RHEUMATOID ARTHRITIS
     Route: 048
     Dates: start: 20010101
  10. OXYCONTIN [Concomitant]
     Indication: PAIN
     Route: 048
     Dates: start: 20050101
  11. PANTOPRAZOLE [Concomitant]
     Indication: GASTRIC DISORDER
     Route: 048
     Dates: start: 20060101
  12. NOVO-DOCUSATE [Concomitant]
     Indication: CONSTIPATION
     Route: 048
     Dates: start: 20090101
  13. OXYCONTIN [Concomitant]
     Route: 048
     Dates: start: 20050101, end: 20100101
  14. HUMIRA [Suspect]
     Indication: RHEUMATOID ARTHRITIS
     Route: 058
     Dates: start: 20100322
  15. ATACAND [Concomitant]
     Indication: MYOCARDIAL INFARCTION
     Route: 048
     Dates: start: 20090101
  16. NITROGLYCERIN [Concomitant]
     Indication: MYOCARDIAL INFARCTION
     Dosage: SPRAY
     Route: 060
     Dates: start: 20090101
  17. LIPITOR [Concomitant]
     Indication: BLOOD CHOLESTEROL INCREASED
     Route: 048
     Dates: start: 20090101
  18. PAXIL [Concomitant]
     Indication: PANIC ATTACK
     Route: 048
     Dates: start: 19960101
  19. DILAUDID [Concomitant]
     Indication: PAIN
     Route: 048
     Dates: start: 20070101

REACTIONS (5)
  - INJECTION SITE PAIN [None]
  - GASTRIC HAEMORRHAGE [None]
  - ARTERIAL OCCLUSIVE DISEASE [None]
  - SCAN ABNORMAL [None]
  - IRON DEFICIENCY ANAEMIA [None]
